FAERS Safety Report 22310094 (Version 1)
Quarter: 2023Q2

REPORT INFORMATION
  Report Type: Spontaneous
  Country: FR (occurrence: FR)
  Receive Date: 20230511
  Receipt Date: 20230511
  Transmission Date: 20230721
  Serious: Yes (Other)
  Sender: FDA-Public Use
  Company Number: None

PATIENT
  Age: 43 Year
  Sex: Female
  Weight: 55 kg

DRUGS (5)
  1. LEVOFLOXACIN [Suspect]
     Active Substance: LEVOFLOXACIN
     Indication: Urinary tract infection
     Dosage: 500 MILLIGRAM DAILY; 500MG/D
     Dates: start: 20210820, end: 20210830
  2. LEVOFLOXACIN [Suspect]
     Active Substance: LEVOFLOXACIN
     Dosage: 500 MILLIGRAM DAILY; 500MG/D
     Dates: start: 20210803, end: 20210810
  3. LEVOFLOXACIN [Suspect]
     Active Substance: LEVOFLOXACIN
     Dosage: 500 MILLIGRAM DAILY; 500MG/D
     Dates: start: 20211112, end: 20211119
  4. OFLOXACIN [Suspect]
     Active Substance: OFLOXACIN
     Indication: Urinary tract infection
     Dosage: 400 MILLIGRAM DAILY; 200 MGX2/D
     Dates: start: 20221001, end: 20221016
  5. CIPROFLOXACIN [Suspect]
     Active Substance: CIPROFLOXACIN
     Indication: Urinary tract infection
     Dosage: 1000 MILLIGRAM DAILY; 500 MGX2/D
     Dates: start: 20221213, end: 20221228

REACTIONS (6)
  - Back pain [Recovering/Resolving]
  - Sleep disorder [Recovering/Resolving]
  - Visual impairment [Recovering/Resolving]
  - Memory impairment [Recovering/Resolving]
  - Neuralgia [Recovering/Resolving]
  - Fatigue [Recovering/Resolving]

NARRATIVE: CASE EVENT DATE: 20210801
